FAERS Safety Report 6361235-4 (Version None)
Quarter: 2009Q3

REPORT INFORMATION
  Report Type: 
  Country: None (occurrence: None)
  Receive Date: 20090918
  Receipt Date: 20090908
  Transmission Date: 20100115
  Serious: Yes (Hospitalization)
  Sender: FDA-Public Use
  Company Number: US-TYCO HEALTHCARE/MALLINCKRODT-T200901693

PATIENT
  Sex: Female
  Weight: 63.492 kg

DRUGS (3)
  1. OPTIRAY 350 [Suspect]
     Indication: COMPUTERISED TOMOGRAM
     Dosage: 75 ML, SINGLE
     Route: 042
     Dates: start: 20090828, end: 20090828
  2. ANTIBIOTICS [Concomitant]
     Indication: INFECTION
     Dosage: UNK
  3. IMURAN                             /00001501/ [Concomitant]
     Indication: SYSTEMIC LUPUS ERYTHEMATOSUS
     Dosage: UNK

REACTIONS (2)
  - PHLEBITIS [None]
  - SYSTEMIC LUPUS ERYTHEMATOSUS [None]
